FAERS Safety Report 25337845 (Version 1)
Quarter: 2025Q2

REPORT INFORMATION
  Report Type: Spontaneous
  Country: FR (occurrence: FR)
  Receive Date: 20250520
  Receipt Date: 20250520
  Transmission Date: 20250717
  Serious: Yes (Hospitalization)
  Sender: MYLAN
  Company Number: None

PATIENT
  Age: 80 Year
  Sex: Female

DRUGS (14)
  1. FENTANYL [Interacting]
     Active Substance: FENTANYL
     Indication: Lumbar spinal stenosis
     Dosage: 25 MICROGRAM, QD
     Dates: start: 20240924, end: 20241005
  2. PREGABALIN [Interacting]
     Active Substance: PREGABALIN
     Indication: Lumbar spinal stenosis
     Dosage: 50 MILLIGRAM, QD
     Dates: start: 20240601, end: 20241005
  3. INDAPAMIDE [Interacting]
     Active Substance: INDAPAMIDE
     Indication: Hypertension
     Dosage: 2.5 MILLIGRAM, QD, LONG-TERM
  4. BROMAZEPAM [Interacting]
     Active Substance: BROMAZEPAM
     Indication: Anxiety
     Dosage: 1 DOSAGE FORM, QD
     Dates: start: 20241001, end: 20241005
  5. CYMBALTA [Interacting]
     Active Substance: DULOXETINE HYDROCHLORIDE
     Indication: Depression
     Dosage: 120 MILLIGRAM, QD
     Dates: start: 20240601
  6. PERINDOPRIL [Concomitant]
     Active Substance: PERINDOPRIL
  7. OXAZEPAM [Concomitant]
     Active Substance: OXAZEPAM
  8. SIMVASTATIN [Concomitant]
     Active Substance: SIMVASTATIN
  9. KARDEGIC [Concomitant]
     Active Substance: ASPIRIN DL-LYSINE
  10. SITAGLIPTIN [Concomitant]
     Active Substance: SITAGLIPTIN
  11. METFORMIN HYDROCHLORIDE [Concomitant]
     Active Substance: METFORMIN HYDROCHLORIDE
  12. ALLOPURINOL [Concomitant]
     Active Substance: ALLOPURINOL
  13. POLYETHYLENE GLYCOL 4000 [Concomitant]
     Active Substance: POLYETHYLENE GLYCOL 4000
  14. MINERAL OIL [Concomitant]
     Active Substance: MINERAL OIL

REACTIONS (5)
  - Confusional state [Recovered/Resolved]
  - Disorientation [Recovered/Resolved]
  - Vertigo [Recovered/Resolved]
  - Hypotension [Recovered/Resolved]
  - Drug interaction [Unknown]

NARRATIVE: CASE EVENT DATE: 20241004
